FAERS Safety Report 15884654 (Version 1)
Quarter: 2019Q1

REPORT INFORMATION
  Report Type: Report from Study
  Country: None (occurrence: US)
  Receive Date: 20190129
  Receipt Date: 20190129
  Transmission Date: 20190417
  Serious: Yes (Hospitalization, Other)
  Sender: FDA-Public Use
  Company Number: US-BAUSCH-BL-2019-002545

PATIENT
  Age: 19 Year
  Sex: Female

DRUGS (6)
  1. DEXAMETHASONE. [Suspect]
     Active Substance: DEXAMETHASONE
     Indication: NEUROCYSTICERCOSIS
     Dosage: DECREASED BY 2 MG EVERY TWO DAYS
     Route: 065
     Dates: start: 2014
  2. DEXAMETHASONE. [Suspect]
     Active Substance: DEXAMETHASONE
     Dosage: INCREASED TO 16/MG DAY
     Route: 065
     Dates: start: 20140910, end: 2014
  3. DEXAMETHASONE. [Suspect]
     Active Substance: DEXAMETHASONE
     Route: 065
     Dates: start: 2014
  4. DEXAMETHASONE. [Suspect]
     Active Substance: DEXAMETHASONE
     Dosage: SHE WAS IN THE MIDST OF A DEXAMETHASONE TAPER
     Route: 065
  5. KEPPRA [Concomitant]
     Active Substance: LEVETIRACETAM
     Indication: NEUROCYSTICERCOSIS
     Dates: start: 201409, end: 20140929
  6. BACTRIM [Concomitant]
     Active Substance: SULFAMETHOXAZOLE\TRIMETHOPRIM
     Indication: ANTIFUNGAL PROPHYLAXIS

REACTIONS (1)
  - Substance-induced psychotic disorder [Unknown]

NARRATIVE: CASE EVENT DATE: 20140913
